FAERS Safety Report 8124390 (Version 2)
Quarter: 2014Q1

REPORT INFORMATION
  Report Type: Spontaneous
  Country: US (occurrence: US)
  Receive Date: 20110907
  Receipt Date: 20140305
  Transmission Date: 20141002
  Serious: Yes (Life-Threatening, Hospitalization)
  Sender: FDA-Public Use
  Company Number: US-GLAXOSMITHKLINE-A0698893A

PATIENT
  Age: 59 Year
  Sex: Female
  Weight: 105.5 kg

DRUGS (2)
  1. AVANDIA [Suspect]
     Indication: BLOOD PRESSURE
     Dosage: 8MG PER DAY
     Route: 048
     Dates: start: 1999, end: 20070503
  2. METFORMIN [Concomitant]
     Dates: start: 20020601, end: 200806

REACTIONS (6)
  - Myocardial infarction [Unknown]
  - Cerebrovascular accident [Unknown]
  - Angina pectoris [Unknown]
  - Pain [Unknown]
  - Anxiety [Unknown]
  - Transient ischaemic attack [Unknown]
